FAERS Safety Report 8873392 (Version 1)
Quarter: 2012Q4

REPORT INFORMATION
  Report Type: 
  Country: ES (occurrence: ES)
  Receive Date: 20121030
  Receipt Date: 20121030
  Transmission Date: 20130627
  Serious: Yes (Hospitalization, Other)
  Sender: FDA-Public Use
  Company Number: ES-ELI_LILLY_AND_COMPANY-ES201202001355

PATIENT
  Age: 71 Year
  Sex: Female

DRUGS (5)
  1. ACTOS [Suspect]
     Indication: DIABETES MELLITUS
     Dosage: 30 mg, qd
     Route: 048
     Dates: start: 20091215, end: 20111222
  2. ACETYLSALICYLIC ACID [Concomitant]
     Dosage: 100 mg, qd
  3. GLIMEPIRIDE [Concomitant]
     Dosage: 4 mg, qd
  4. SIMVASTATIN [Concomitant]
     Dosage: 20 mg, qd
  5. LORMETAZEPAM [Concomitant]
     Dosage: 1 mg, each evening

REACTIONS (3)
  - Femur fracture [Unknown]
  - Injury [Unknown]
  - Accident [Unknown]
